FAERS Safety Report 13918088 (Version 1)
Quarter: 2017Q3

REPORT INFORMATION
  Report Type: Spontaneous
  Country: US (occurrence: US)
  Receive Date: 20170829
  Receipt Date: 20170829
  Transmission Date: 20171127
  Serious: Yes (Hospitalization, Other)
  Sender: FDA-Public Use
  Company Number: US-LUNDBECK-DKLU2036033

PATIENT
  Age: 1 Year
  Sex: Female

DRUGS (1)
  1. SABRIL [Suspect]
     Active Substance: VIGABATRIN
     Indication: INFANTILE SPASMS
     Route: 048
     Dates: start: 20170313, end: 20170809

REACTIONS (4)
  - Ophthalmological examination abnormal [Unknown]
  - Gait disturbance [Unknown]
  - Nuclear magnetic resonance imaging brain abnormal [Unknown]
  - Fall [Unknown]

NARRATIVE: CASE EVENT DATE: 201708
